FAERS Safety Report 6354815-3 (Version None)
Quarter: 2009Q3

REPORT INFORMATION
  Report Type: 
  Country: None (occurrence: None)
  Receive Date: 20090914
  Receipt Date: 20090903
  Transmission Date: 20100115
  Serious: Yes (Other)
  Sender: FDA-Public Use
  Company Number: US-BAYER-200930784NA

PATIENT
  Age: 59 Year
  Sex: Female

DRUGS (1)
  1. NEXAVAR [Suspect]
     Indication: CARCINOID TUMOUR
     Dosage: TOTAL DAILY DOSE: 800 MG  UNIT DOSE: 200 MG
     Route: 048
     Dates: start: 20080101

REACTIONS (4)
  - IMPAIRED HEALING [None]
  - MELANOCYTIC NAEVUS [None]
  - SEBORRHOEIC KERATOSIS [None]
  - SQUAMOUS CELL CARCINOMA OF SKIN [None]
